FAERS Safety Report 10730501 (Version 1)
Quarter: 2015Q1

REPORT INFORMATION
  Report Type: Spontaneous
  Country: AU (occurrence: AU)
  Receive Date: 20150122
  Receipt Date: 20150122
  Transmission Date: 20150721
  Serious: Yes (Hospitalization)
  Sender: FDA-Public Use
  Company Number: AU-PFIZER INC-2015021583

PATIENT
  Age: 12 Year
  Sex: Male
  Weight: 60.7 kg

DRUGS (2)
  1. CRIZOTINIB [Suspect]
     Active Substance: CRIZOTINIB
     Indication: SARCOMA
     Dosage: 400 MG, 2X/DAY
     Route: 048
     Dates: start: 20131121
  2. G-CSF [Concomitant]
     Active Substance: GRANULOCYTE COLONY-STIMULATING FACTOR NOS
     Indication: NEUTROPENIA
     Dosage: 300 ?G, WEEKLY
     Route: 058
     Dates: start: 201401

REACTIONS (1)
  - Stress fracture [Unknown]
